FAERS Safety Report 7757046 (Version 2)
Quarter: 2014Q3

REPORT INFORMATION
  Report Type: Spontaneous
  Country: US (occurrence: US)
  Receive Date: 20110112
  Receipt Date: 20140711
  Transmission Date: 20150326
  Serious: Yes (Hospitalization, Other)
  Sender: FDA-Public Use
  Company Number: US-ROCHE-730947

PATIENT
  Age: 15 Year
  Sex: Male
  Weight: 76.2 kg

DRUGS (1)
  1. ACCUTANE [Suspect]
     Active Substance: ISOTRETINOIN
     Indication: ACNE
     Route: 065
     Dates: start: 200012, end: 20010727

REACTIONS (15)
  - Inflammatory bowel disease [Unknown]
  - Pyrexia [Unknown]
  - Osteoarthritis [Unknown]
  - Myalgia [Unknown]
  - Myalgia [Unknown]
  - Crohn^s disease [Unknown]
  - Dry skin [Unknown]
  - Epistaxis [Unknown]
  - Gastrointestinal injury [Unknown]
  - Oropharyngeal pain [Unknown]
  - Lip dry [Unknown]
  - Depression [Unknown]
  - Colitis ulcerative [Unknown]
  - Intestinal obstruction [Unknown]
  - Blood triglycerides increased [Unknown]

NARRATIVE: CASE EVENT DATE: 20010102
